FAERS Safety Report 18057754 (Version 1)
Quarter: 2020Q3

REPORT INFORMATION
  Report Type: Spontaneous
  Country: US (occurrence: US)
  Receive Date: 20200723
  Receipt Date: 20200723
  Transmission Date: 20201103
  Serious: Yes (Other)
  Sender: FDA-Public Use
  Company Number: US-LUPIN PHARMACEUTICALS INC.-2020-03552

PATIENT
  Age: 47 Year
  Sex: Male

DRUGS (6)
  1. QUETIAPINE FUMARATE. [Suspect]
     Active Substance: QUETIAPINE FUMARATE
     Indication: AFFECTIVE DISORDER
     Dosage: 300 MILLIGRAM, QD (EVERY BEDTIME )
     Route: 065
  2. DULOXETINE. [Concomitant]
     Active Substance: DULOXETINE
     Indication: PRODUCT USED FOR UNKNOWN INDICATION
     Dosage: 120 MILLIGRAM, QD
     Route: 065
  3. TOPIRAMATE. [Suspect]
     Active Substance: TOPIRAMATE
     Indication: SLEEP-RELATED EATING DISORDER
     Dosage: 25 MILLIGRAM, QD (EVERY BEDTIME)
  4. TOPIRAMATE. [Suspect]
     Active Substance: TOPIRAMATE
     Indication: SOMNAMBULISM
     Dosage: 50 MILLIGRAM, QD (EVERY BEDTIME)
     Route: 065
  5. DEXTROAMPHETAMINE SACCHARATE, AMPHETAMINE ASPARTATE MONOHYDRATE, DEXTR [Concomitant]
     Indication: PRODUCT USED FOR UNKNOWN INDICATION
     Dosage: 20 MILLIGRAM, TID
     Route: 065
  6. DIVALPROEX SODIUM. [Concomitant]
     Active Substance: DIVALPROEX SODIUM
     Indication: PRODUCT USED FOR UNKNOWN INDICATION
     Dosage: 2000 MILLIGRAM, QD(EVERY BEDTIME0
     Route: 065

REACTIONS (7)
  - Alopecia [Unknown]
  - Restless legs syndrome [Recovered/Resolved]
  - Somnambulism [Recovered/Resolved]
  - Cognitive disorder [Unknown]
  - Choking [Unknown]
  - Sleep-related eating disorder [Recovered/Resolved]
  - Weight increased [Unknown]
